FAERS Safety Report 10615226 (Version 2)
Quarter: 2014Q4

REPORT INFORMATION
  Report Type: Spontaneous
  Country: IE (occurrence: IE)
  Receive Date: 20141201
  Receipt Date: 20141226
  Transmission Date: 20150529
  Serious: Yes (Other)
  Sender: FDA-Public Use
  Company Number: IE-ROCHE-1498569

PATIENT
  Sex: Female

DRUGS (5)
  1. PEGASYS [Suspect]
     Active Substance: PEGINTERFERON ALFA-2A
     Indication: HEPATITIS C
     Dosage: INDICATIOON : ANTI D, HEPATITIS C GENOTYPE 1B
     Route: 065
  2. TELAPREVIR [Suspect]
     Active Substance: TELAPREVIR
     Indication: HEPATITIS C
     Dosage: INDICATIOON : ANTI D, HEPATITIS C GENOTYPE 1B
     Route: 065
     Dates: start: 20140214
  3. COPEGUS [Suspect]
     Active Substance: RIBAVIRIN
     Indication: HEPATITIS C
     Dosage: INDICATIOON : ANTI D, HEPATITIS C GENOTYPE 1B?COPEGUS DOSE HAD BEEN MAINTAINED BETWEEN 400MGS AND 60
     Route: 065
  4. COPEGUS [Suspect]
     Active Substance: RIBAVIRIN
     Route: 065
     Dates: start: 20140214, end: 20141215
  5. PEGASYS [Suspect]
     Active Substance: PEGINTERFERON ALFA-2A
     Route: 065
     Dates: start: 20140214

REACTIONS (3)
  - Corneal abrasion [Unknown]
  - Immunosuppression [Unknown]
  - No therapeutic response [Unknown]
